FAERS Safety Report 6636955-4 (Version None)
Quarter: 2010Q1

REPORT INFORMATION
  Report Type: 
  Country: None (occurrence: None)
  Receive Date: 20100316
  Receipt Date: 20100311
  Transmission Date: 20100710
  Serious: Yes (Other)
  Sender: FDA-Public Use
  Company Number: US-WYE-H14061510

PATIENT
  Sex: Male

DRUGS (1)
  1. ROBITUSSIN COUGH AND COLD LONG ACTING [Suspect]
     Dosage: UNKNOWN
     Route: 048

REACTIONS (5)
  - DRUG ABUSE [None]
  - EUPHORIC MOOD [None]
  - FEELING ABNORMAL [None]
  - OVERDOSE [None]
  - VOMITING [None]
